FAERS Safety Report 5774160-4 (Version None)
Quarter: 2008Q2

REPORT INFORMATION
  Report Type: 
  Country: None (occurrence: None)
  Receive Date: 20080601
  Receipt Date: 20080321
  Transmission Date: 20081010
  Serious: No
  Sender: FDA-Public Use
  Company Number: US200710003980

PATIENT
  Age: 78 Year
  Sex: Male
  Weight: 96.8 kg

DRUGS (5)
  1. BYETTA [Suspect]
     Indication: INSULIN-REQUIRING TYPE 2 DIABETES MELLITUS
     Dosage: 5 UG, 2/D, SUBCUTANEOUS ; 10 UG, 2/D, SUBCUTANEOUS ; 20 UG, SUBCUTANEOUS
     Route: 058
     Dates: start: 20071001, end: 20070101
  2. BYETTA [Suspect]
     Indication: INSULIN-REQUIRING TYPE 2 DIABETES MELLITUS
     Dosage: 5 UG, 2/D, SUBCUTANEOUS ; 10 UG, 2/D, SUBCUTANEOUS ; 20 UG, SUBCUTANEOUS
     Route: 058
     Dates: start: 20070901, end: 20071001
  3. BYETTA [Suspect]
     Indication: INSULIN-REQUIRING TYPE 2 DIABETES MELLITUS
     Dosage: 5 UG, 2/D, SUBCUTANEOUS ; 10 UG, 2/D, SUBCUTANEOUS ; 20 UG, SUBCUTANEOUS
     Route: 058
     Dates: start: 20071011, end: 20071011
  4. LANTUS [Concomitant]
  5. AVANDIA [Concomitant]

REACTIONS (2)
  - INCORRECT DOSE ADMINISTERED [None]
  - WEIGHT DECREASED [None]
